FAERS Safety Report 4739884-6 (Version None)
Quarter: 2005Q3

REPORT INFORMATION
  Report Type: 
  Country: None (occurrence: None)
  Receive Date: 20050809
  Receipt Date: 20050809
  Transmission Date: 20060218
  Serious: Yes (Disabling)
  Sender: FDA-Public Use
  Company Number: None

PATIENT
  Age: 48 Year
  Sex: Female
  Weight: 129.2752 kg

DRUGS (1)
  1. DARVOCET [Suspect]
     Indication: ANALGESIC EFFECT
     Dosage: 100 /650 Q 4-6 H AS NEEDED ORAL
     Route: 048

REACTIONS (6)
  - AGEUSIA [None]
  - ANOSMIA [None]
  - PHARYNGOLARYNGEAL PAIN [None]
  - RESPIRATORY DISORDER [None]
  - RHINORRHOEA [None]
  - SINUSITIS [None]
